FAERS Safety Report 9283879 (Version 1)
Quarter: 2013Q2

REPORT INFORMATION
  Report Type: Spontaneous
  Country: FR (occurrence: FR)
  Receive Date: 20130510
  Receipt Date: 20130510
  Transmission Date: 20140414
  Serious: Yes (Other)
  Sender: FDA-Public Use
  Company Number: FR-PFIZER INC-2013140875

PATIENT
  Age: 67 Year
  Sex: Female

DRUGS (1)
  1. AROMASINE [Suspect]

REACTIONS (16)
  - Bone disorder [Unknown]
  - Osteoporosis [Unknown]
  - Osteoarthritis [Unknown]
  - Insomnia [Unknown]
  - Headache [Unknown]
  - Hot flush [Unknown]
  - Malaise [Unknown]
  - Hyperhidrosis [Unknown]
  - Decreased appetite [Unknown]
  - Depression [Unknown]
  - Vertigo [Unknown]
  - Abdominal pain upper [Unknown]
  - Vomiting [Unknown]
  - Nausea [Unknown]
  - Constipation [Unknown]
  - Alopecia [Unknown]
